FAERS Safety Report 8488396-5 (Version None)
Quarter: 2012Q3

REPORT INFORMATION
  Report Type: 
  Country: None (occurrence: None)
  Receive Date: 20120705
  Receipt Date: 20120626
  Transmission Date: 20120928
  Serious: Yes (Other)
  Sender: FDA-Public Use
  Company Number: US-JNJFOC-20120613171

PATIENT
  Sex: Male
  Weight: 72.58 kg

DRUGS (1)
  1. STELARA [Suspect]
     Indication: NAIL PSORIASIS
     Route: 058
     Dates: start: 20110101, end: 20111201

REACTIONS (5)
  - CONFUSIONAL STATE [None]
  - HEADACHE [None]
  - ABNORMAL LOSS OF WEIGHT [None]
  - OFF LABEL USE [None]
  - CEREBRAL ATROPHY [None]
